FAERS Safety Report 4994837-8 (Version None)
Quarter: 2006Q2

REPORT INFORMATION
  Report Type: 
  Country: None (occurrence: None)
  Receive Date: 20060508
  Receipt Date: 20060412
  Transmission Date: 20061013
  Serious: Yes (Other)
  Sender: FDA-Public Use
  Company Number: PHBS2006PE05707

PATIENT
  Age: 60 Year
  Sex: Male

DRUGS (3)
  1. DIOVAN HCT [Suspect]
     Indication: HYPERTENSION
     Dosage: VALS 160/ HCT 25 MG/DAY
     Route: 048
     Dates: start: 20060301, end: 20060301
  2. ACETYLSALICYLIC ACID SRT [Concomitant]
     Indication: CARDIOVASCULAR DISORDER
     Dates: start: 20060301
  3. LIPID REDUCERS [Concomitant]
     Indication: BLOOD CHOLESTEROL INCREASED
     Dates: start: 20060301

REACTIONS (3)
  - BLOOD PRESSURE INCREASED [None]
  - CORONARY ARTERY DISEASE [None]
  - DRUG INEFFECTIVE [None]
